FAERS Safety Report 8578617-2 (Version None)
Quarter: 2012Q3

REPORT INFORMATION
  Report Type: 
  Country: None (occurrence: None)
  Receive Date: 20120808
  Receipt Date: 20120731
  Transmission Date: 20120928
  Serious: Yes (Hospitalization)
  Sender: FDA-Public Use
  Company Number: CN-ASTELLAS-2012JP007258

PATIENT
  Sex: Female

DRUGS (6)
  1. TACROLIMUS [Suspect]
     Indication: LIVER TRANSPLANT
     Dosage: UNK
     Route: 048
     Dates: start: 20110101
  2. TACROLIMUS [Suspect]
     Dosage: UNK
     Route: 048
     Dates: start: 20010613, end: 20110101
  3. IMMUNE GLOBULIN NOS [Concomitant]
     Route: 065
  4. HEPTODIN [Concomitant]
     Route: 065
  5. URSODIOL [Concomitant]
     Route: 048
  6. CELLCEPT [Concomitant]
     Route: 065

REACTIONS (3)
  - MATERNAL EXPOSURE DURING PREGNANCY [None]
  - HEPATIC FUNCTION ABNORMAL [None]
  - LIVER TRANSPLANT REJECTION [None]
